FAERS Safety Report 9617310 (Version 1)
Quarter: 2013Q4

REPORT INFORMATION
  Report Type: Report from Study
  Country: US (occurrence: US)
  Receive Date: 20131011
  Receipt Date: 20131011
  Transmission Date: 20140711
  Serious: Yes (Hospitalization, Other)
  Sender: FDA-Public Use
  Company Number: US-JNJFOC-20131002339

PATIENT
  Sex: Female
  Weight: 113.4 kg

DRUGS (5)
  1. REMICADE [Suspect]
     Indication: CROHN^S DISEASE
     Route: 042
     Dates: start: 2005
  2. VITAMIN D3 WITH VITAMIN A [Concomitant]
     Indication: HYPOVITAMINOSIS
     Route: 048
     Dates: start: 2013
  3. TRAMADOL [Concomitant]
     Indication: PAIN
     Route: 048
     Dates: start: 2013
  4. ATENOLOL [Concomitant]
     Indication: BLOOD PRESSURE
     Dosage: 50MG/1/2 TABLET
     Route: 048
     Dates: start: 1989
  5. DIAZEPAM [Concomitant]
     Indication: NERVOUS SYSTEM DISORDER
     Dosage: SINCE MANY YEARS
     Route: 048

REACTIONS (4)
  - Depression [Unknown]
  - Loss of consciousness [Recovered/Resolved]
  - Anaemia [Unknown]
  - Abnormal loss of weight [Not Recovered/Not Resolved]
